APPROVED DRUG PRODUCT: OPTIMINE
Active Ingredient: AZATADINE MALEATE
Strength: 1MG
Dosage Form/Route: TABLET;ORAL
Application: N017601 | Product #001
Applicant: SCHERING CORP SUB SCHERING PLOUGH CORP
Approved: Approved Prior to Jan 1, 1982 | RLD: No | RS: No | Type: DISCN